FAERS Safety Report 12836637 (Version 2)
Quarter: 2016Q4

REPORT INFORMATION
  Report Type: Report from Study
  Country: US (occurrence: US)
  Receive Date: 20161011
  Receipt Date: 20161102
  Transmission Date: 20170207
  Serious: Yes (Other)
  Sender: FDA-Public Use
  Company Number: US-GILEAD-2016-0237221

PATIENT
  Age: 54 Year
  Sex: Female

DRUGS (2)
  1. SILDENAFIL. [Concomitant]
     Active Substance: SILDENAFIL
  2. AMBRISENTAN [Suspect]
     Active Substance: AMBRISENTAN
     Indication: PRODUCT USED FOR UNKNOWN INDICATION
     Dosage: 10 MG, QD
     Route: 065
     Dates: start: 20160707

REACTIONS (11)
  - Diverticulitis [Unknown]
  - Dyspnoea exertional [Unknown]
  - Colectomy [Unknown]
  - Dyspnoea [Not Recovered/Not Resolved]
  - Palpitations [Not Recovered/Not Resolved]
  - Chest pain [Not Recovered/Not Resolved]
  - Gastric disorder [Unknown]
  - Vomiting [Unknown]
  - Generalised oedema [Not Recovered/Not Resolved]
  - Cardiac failure congestive [Unknown]
  - Pulmonary embolism [Unknown]
